FAERS Safety Report 9847232 (Version 3)
Quarter: 2014Q2

REPORT INFORMATION
  Report Type: Spontaneous
  Country: US (occurrence: US)
  Receive Date: 20140127
  Receipt Date: 20140626
  Transmission Date: 20141212
  Serious: No
  Sender: FDA-Public Use
  Company Number: US-009507513-1401USA009984

PATIENT
  Sex: Male

DRUGS (3)
  1. PROPECIA [Suspect]
     Indication: ALOPECIA
     Dosage: 1 MG, QD
     Route: 048
     Dates: start: 19980709, end: 2000
  2. PROPECIA [Suspect]
     Dosage: 1 MG, QD
     Route: 048
     Dates: start: 2000, end: 2007
  3. PROPECIA [Suspect]
     Dosage: 1 MG, QD
     Route: 048
     Dates: start: 2008, end: 2013

REACTIONS (16)
  - Anxiety [Not Recovered/Not Resolved]
  - Erectile dysfunction [Not Recovered/Not Resolved]
  - Libido decreased [Not Recovered/Not Resolved]
  - Ejaculation disorder [Not Recovered/Not Resolved]
  - Sexual dysfunction [Not Recovered/Not Resolved]
  - Depression [Not Recovered/Not Resolved]
  - Fatigue [Not Recovered/Not Resolved]
  - Erectile dysfunction [Not Recovered/Not Resolved]
  - Acrochordon [Not Recovered/Not Resolved]
  - Pharyngitis [Not Recovered/Not Resolved]
  - Acne [Not Recovered/Not Resolved]
  - Oral herpes [Not Recovered/Not Resolved]
  - Joint crepitation [Unknown]
  - Skin papilloma [Unknown]
  - Arthralgia [Unknown]
  - Tonsillitis [Not Recovered/Not Resolved]
